FAERS Safety Report 8415256-8 (Version None)
Quarter: 2012Q2

REPORT INFORMATION
  Report Type: 
  Country: None (occurrence: None)
  Receive Date: 20120606
  Receipt Date: 20120529
  Transmission Date: 20120825
  Serious: Yes (Hospitalization, Other)
  Sender: FDA-Public Use
  Company Number: MX-ELI_LILLY_AND_COMPANY-MX201205004727

PATIENT
  Age: 75 Year
  Sex: Female
  Weight: 52 kg

DRUGS (1)
  1. HUMALOG MIX 75/25 [Suspect]
     Indication: DIABETES MELLITUS
     Dosage: 42 IU, QD
     Route: 058
     Dates: start: 20110101

REACTIONS (2)
  - FALL [None]
  - PELVIC FRACTURE [None]
